FAERS Safety Report 11077337 (Version 1)
Quarter: 2015Q2

REPORT INFORMATION
  Report Type: Report from Study
  Country: JP (occurrence: JP)
  Receive Date: 20150429
  Receipt Date: 20150429
  Transmission Date: 20150821
  Serious: Yes (Other)
  Sender: FDA-Public Use
  Company Number: JP-BRISTOL-MYERS SQUIBB COMPANY-BMS-2015-026852

PATIENT
  Age: 73 Year
  Sex: Female
  Weight: 44 kg

DRUGS (6)
  1. APIXABAN [Suspect]
     Active Substance: APIXABAN
     Indication: THROMBOSIS PROPHYLAXIS
     Dosage: 2.5 MG, BID
     Route: 048
     Dates: start: 20140318
  2. AMARYL [Concomitant]
     Active Substance: GLIMEPIRIDE
     Indication: DIABETES MELLITUS
     Dosage: 2 MG, QD
     Route: 048
  3. DIGOXIN. [Concomitant]
     Active Substance: DIGOXIN
     Indication: THROMBOSIS PROPHYLAXIS
     Dosage: 0.25 MG, QD
     Route: 048
  4. RIZE                               /00624801/ [Concomitant]
     Active Substance: CLOTIAZEPAM
     Indication: ANXIETY DISORDER
     Dosage: 5 MG, QD
     Route: 048
  5. DEQUALINIUM CHLORIDE [Concomitant]
     Active Substance: DEQUALINIUM CHLORIDE
     Indication: DIABETES MELLITUS
     Dosage: 100 MG, QD
     Route: 048
  6. LIVALO [Concomitant]
     Active Substance: PITAVASTATIN CALCIUM
     Indication: HYPERCHOLESTEROLAEMIA
     Dosage: 1 MG, QD
     Route: 048

REACTIONS (2)
  - Cardioactive drug level increased [Recovered/Resolved]
  - Hypertension [Recovering/Resolving]

NARRATIVE: CASE EVENT DATE: 20140624
